FAERS Safety Report 8684351 (Version 3)
Quarter: 2013Q3

REPORT INFORMATION
  Report Type: Spontaneous
  Country: US (occurrence: US)
  Receive Date: 20120726
  Receipt Date: 20130809
  Transmission Date: 20140515
  Serious: Yes (Other)
  Sender: FDA-Public Use
  Company Number: US-ASTRAZENECA-2011SE68924

PATIENT
  Age: 65 Year
  Sex: Female
  Weight: 78.5 kg

DRUGS (19)
  1. NEXIUM [Suspect]
     Indication: GASTROOESOPHAGEAL REFLUX DISEASE
     Route: 048
     Dates: start: 2008
  2. LISINOPRIL [Suspect]
     Route: 048
     Dates: start: 20010728
  3. TOPROL XL [Suspect]
     Indication: TACHYCARDIA
     Route: 048
     Dates: start: 1998
  4. TOPROL XL [Suspect]
     Indication: HYPERTENSION
     Route: 048
     Dates: start: 1998
  5. TOPROL XL [Suspect]
     Indication: TACHYCARDIA
     Route: 048
     Dates: start: 20070503
  6. TOPROL XL [Suspect]
     Indication: HYPERTENSION
     Route: 048
     Dates: start: 20070503
  7. CRESTOR [Suspect]
     Route: 048
  8. ASPIRIN [Suspect]
     Indication: CARDIAC DISORDER
     Route: 048
     Dates: start: 1998
  9. ASPIRIN [Suspect]
     Indication: CARDIAC DISORDER
     Route: 048
     Dates: start: 20070503
  10. IMDUR [Suspect]
     Route: 048
     Dates: start: 20070503
  11. XANAX [Suspect]
     Dosage: 0.5 MG, 1-2 TABLETS Q4H PRN
     Route: 065
     Dates: start: 20070503
  12. ZYRTEC [Suspect]
     Indication: HYPERSENSITIVITY
     Route: 065
     Dates: start: 20100125
  13. NITROGLYCERIN [Suspect]
     Route: 060
  14. RANITIDINE HCL [Suspect]
     Route: 048
  15. MAALOX [Suspect]
     Route: 048
  16. FOLIC ACID [Concomitant]
     Indication: CHEMOTHERAPY
     Route: 048
     Dates: start: 201208
  17. FOLIC ACID [Concomitant]
     Indication: ORAL DISORDER
     Route: 048
     Dates: start: 201208
  18. SINGULAIR [Concomitant]
     Indication: MULTIPLE ALLERGIES
     Route: 048
     Dates: start: 2012
  19. CHEMOTHERAPY [Concomitant]
     Indication: LUNG NEOPLASM MALIGNANT
     Dosage: UNKNOWN EVERY 3 WEEKS
     Route: 042
     Dates: start: 201208

REACTIONS (21)
  - Lung neoplasm malignant [Not Recovered/Not Resolved]
  - Neoplasm malignant [Unknown]
  - Hypercholesterolaemia [Unknown]
  - Hypertension [Unknown]
  - Peripheral arterial occlusive disease [Unknown]
  - Chronic obstructive pulmonary disease [Unknown]
  - Affective disorder [Unknown]
  - Hiatus hernia [Unknown]
  - Irritable bowel syndrome [Unknown]
  - Seasonal allergy [Unknown]
  - Hyperlipidaemia [Unknown]
  - Anxiety [Unknown]
  - Dyspepsia [Unknown]
  - Gastrooesophageal reflux disease [Unknown]
  - Gastrooesophageal reflux disease [Not Recovered/Not Resolved]
  - Constipation [Unknown]
  - Dizziness [Unknown]
  - Depression [Unknown]
  - Diarrhoea [Unknown]
  - Nausea [Unknown]
  - Drug dose omission [Unknown]
